FAERS Safety Report 5377447-2 (Version None)
Quarter: 2007Q3

REPORT INFORMATION
  Report Type: 
  Country: None (occurrence: None)
  Receive Date: 20070703
  Receipt Date: 20070622
  Transmission Date: 20080115
  Serious: Yes (Hospitalization)
  Sender: FDA-Public Use
  Company Number: US-JNJFOC-20070401362

PATIENT
  Sex: Male
  Weight: 119.75 kg

DRUGS (11)
  1. DURAGESIC-100 [Suspect]
     Indication: DRUG USE FOR UNKNOWN INDICATION
     Route: 065
  2. FENTANYL CITRATE [Suspect]
     Indication: BREAKTHROUGH PAIN
     Route: 002
  3. ACETAMINOPHEN [Concomitant]
  4. GABAPENTIN [Concomitant]
  5. CELECOXIB [Concomitant]
  6. ZALEPLON [Concomitant]
  7. CYMBALTA [Concomitant]
  8. TAMSULOSIN HCL [Concomitant]
  9. FUROSEMIDE [Concomitant]
  10. OXYCONTIN [Concomitant]
  11. ACETAMINOPHEN AND HYDROCODONE BITARTRATE [Concomitant]
     Route: 065

REACTIONS (2)
  - DRUG WITHDRAWAL SYNDROME [None]
  - PSYCHOTIC DISORDER [None]
